FAERS Safety Report 9109037 (Version 2)
Quarter: 2014Q3

REPORT INFORMATION
  Report Type: Report from Study
  Country: US (occurrence: US)
  Receive Date: 20130222
  Receipt Date: 20140819
  Transmission Date: 20150326
  Serious: Yes (Death, Hospitalization)
  Sender: FDA-Public Use
  Company Number: US-ROCHE-1092273

PATIENT
  Sex: Female

DRUGS (5)
  1. METFORMIN [Concomitant]
     Active Substance: METFORMIN HYDROCHLORIDE
     Route: 048
  2. OMEPRAZOLE. [Concomitant]
     Active Substance: OMEPRAZOLE
     Route: 048
  3. AVASTIN [Suspect]
     Active Substance: BEVACIZUMAB
     Indication: HEPATIC CANCER
     Route: 065
     Dates: start: 20100322
  4. TARCEVA [Suspect]
     Active Substance: ERLOTINIB HYDROCHLORIDE
     Indication: HEPATIC CANCER
     Route: 048
     Dates: start: 20100322
  5. PRAVASTATIN SODIUM. [Concomitant]
     Active Substance: PRAVASTATIN SODIUM

REACTIONS (10)
  - Nerve compression [Unknown]
  - Hyponatraemia [Unknown]
  - Renal failure acute [Unknown]
  - Hepatic cirrhosis [Unknown]
  - Spinal column stenosis [Unknown]
  - Death [Fatal]
  - Hypotension [Recovered/Resolved]
  - Disease progression [Unknown]
  - Asthenia [Unknown]
  - Hypoxia [Unknown]
